FAERS Safety Report 6419742-1 (Version None)
Quarter: 2009Q4

REPORT INFORMATION
  Report Type: 
  Country: None (occurrence: None)
  Receive Date: 20091029
  Receipt Date: 20091023
  Transmission Date: 20100525
  Serious: Yes (Hospitalization)
  Sender: FDA-Public Use
  Company Number: DK-AVENTIS-200921689GDDC

PATIENT
  Age: 4 Year
  Sex: Male

DRUGS (4)
  1. MINIRIN [Suspect]
     Dosage: DOSE QUANTITY: .025; DAILY DOSE UNIT: MILLIGRAM PER MILLILITRE
     Route: 045
     Dates: start: 20090804, end: 20090929
  2. MINIRIN [Suspect]
     Route: 045
     Dates: start: 20090930
  3. TOFRANIL [Concomitant]
  4. BUP-4 [Concomitant]
     Dates: start: 20090930, end: 20091008

REACTIONS (1)
  - CONVULSION [None]
